FAERS Safety Report 8179223-4 (Version None)
Quarter: 2012Q1

REPORT INFORMATION
  Report Type: 
  Country: None (occurrence: None)
  Receive Date: 20120302
  Receipt Date: 20120223
  Transmission Date: 20120608
  Serious: Yes (Hospitalization)
  Sender: FDA-Public Use
  Company Number: US-JNJFOC-20120211854

PATIENT
  Sex: Male
  Weight: 77.11 kg

DRUGS (4)
  1. STELARA [Suspect]
     Indication: PSORIASIS
     Dosage: HAD 5 INJECTIONS
     Route: 058
     Dates: start: 20110101
  2. LIPITOR [Concomitant]
     Indication: BLOOD CHOLESTEROL ABNORMAL
     Route: 048
  3. ZETIA [Concomitant]
     Indication: BLOOD CHOLESTEROL ABNORMAL
     Route: 048
  4. LEVOXYL [Concomitant]
     Indication: THYROID DISORDER
     Route: 048

REACTIONS (1)
  - URINARY RETENTION [None]
